FAERS Safety Report 11510061 (Version 1)
Quarter: 2015Q3

REPORT INFORMATION
  Report Type: Spontaneous
  Country: US (occurrence: US)
  Receive Date: 20150915
  Receipt Date: 20150915
  Transmission Date: 20151125
  Serious: No
  Sender: FDA-Public Use
  Company Number: US-JNJFOC-20150824675

PATIENT
  Sex: Female

DRUGS (2)
  1. INVEGA [Suspect]
     Active Substance: PALIPERIDONE
     Indication: PRODUCT USED FOR UNKNOWN INDICATION
     Route: 048
  2. INVEGA SUSTENNA [Suspect]
     Active Substance: PALIPERIDONE PALMITATE
     Indication: PRODUCT USED FOR UNKNOWN INDICATION
     Route: 030

REACTIONS (13)
  - Weight increased [Unknown]
  - Increased appetite [Unknown]
  - Vomiting [Unknown]
  - Blood pressure increased [Unknown]
  - Pain in extremity [Unknown]
  - Nausea [Unknown]
  - Nightmare [Unknown]
  - Dizziness [Unknown]
  - Anxiety [Unknown]
  - Vision blurred [Unknown]
  - Headache [Unknown]
  - Cough [Unknown]
  - Fatigue [Unknown]
